FAERS Safety Report 5470834-3 (Version None)
Quarter: 2007Q3

REPORT INFORMATION
  Report Type: 
  Country: None (occurrence: None)
  Receive Date: 20070928
  Receipt Date: 20070919
  Transmission Date: 20080115
  Serious: Yes (Other)
  Sender: FDA-Public Use
  Company Number: GB-AMGEN-US244273

PATIENT
  Age: 75 Year
  Sex: Female
  Weight: 60 kg

DRUGS (8)
  1. ENBREL [Suspect]
     Indication: DRUG USE FOR UNKNOWN INDICATION
     Route: 058
     Dates: start: 20030722
  2. CALCICHEW-D3 [Concomitant]
     Dosage: 2 DOSES, FREQUENCY UNKNOWN
     Route: 048
  3. SERTRALINE [Concomitant]
     Dosage: 50MG, FREQUENCY UNKNOWN
     Route: 048
     Dates: start: 20040101
  4. FOSAMAX [Concomitant]
     Route: 048
     Dates: start: 20000101
  5. HYDROXYCHLOROQUINE SULFATE [Concomitant]
     Dosage: 200MG, FREQUENCY UNKNOWN
     Route: 048
     Dates: start: 19990101
  6. LEFLUNOMIDE [Concomitant]
     Dosage: 20MG, FREQUENCY UNKNOWN
     Route: 048
     Dates: start: 20000101
  7. ATORVASTATIN CALCIUM [Concomitant]
     Dosage: 10MG, FREQUENCY UNKNOWN
     Route: 048
     Dates: start: 20060601
  8. ETORICOXIB [Concomitant]
     Dosage: 60MG, FREQUENCY UNKNOWN
     Dates: start: 20040101

REACTIONS (1)
  - BASAL CELL CARCINOMA [None]
